FAERS Safety Report 10673024 (Version 1)
Quarter: 2014Q4

REPORT INFORMATION
  Report Type: Spontaneous
  Country: US (occurrence: US)
  Receive Date: 20141223
  Receipt Date: 20141223
  Transmission Date: 20150529
  Serious: No
  Sender: FDA-Public Use
  Company Number: US-ASTRAZENECA-2014SE95378

PATIENT
  Sex: Female
  Weight: 112.5 kg

DRUGS (10)
  1. ATORVASTITIN [Concomitant]
     Indication: CARDIAC DISORDER
     Route: 048
     Dates: start: 2012
  2. METOPROLOL TARTRATE. [Suspect]
     Active Substance: METOPROLOL TARTRATE
     Route: 048
     Dates: start: 2009
  3. GLYPIZIDE [Concomitant]
     Route: 048
     Dates: start: 2009
  4. AMLODIPING BSYLATE [Concomitant]
     Route: 048
     Dates: start: 2012
  5. ISOSORB MONO ER [Concomitant]
     Route: 048
     Dates: start: 2012
  6. FUROSEMIDE. [Concomitant]
     Active Substance: FUROSEMIDE
     Indication: BLOOD PRESSURE ABNORMAL
     Route: 048
  7. BRILINTA [Suspect]
     Active Substance: TICAGRELOR
     Indication: STENT PLACEMENT
     Route: 048
     Dates: start: 2012
  8. METFORMIN [Concomitant]
     Active Substance: METFORMIN HYDROCHLORIDE
     Route: 048
  9. NITROGLYCERINE [Concomitant]
     Active Substance: NITROGLYCERIN
     Indication: ANGINA PECTORIS
     Route: 048
     Dates: start: 2012
  10. ASPIRIN. [Concomitant]
     Active Substance: ASPIRIN
     Indication: CARDIAC DISORDER
     Route: 048

REACTIONS (1)
  - Arthralgia [Not Recovered/Not Resolved]
